FAERS Safety Report 4434237-2 (Version None)
Quarter: 2004Q3

REPORT INFORMATION
  Report Type: 
  Country: None (occurrence: None)
  Receive Date: 20040726
  Receipt Date: 20040310
  Transmission Date: 20050211
  Serious: No
  Sender: FDA-Public Use
  Company Number: USA040157491

PATIENT
  Age: 67 Year
  Sex: Female

DRUGS (9)
  1. FORTEO [Suspect]
     Indication: OSTEOPOROSIS
     Dates: start: 20040120, end: 20040202
  2. SYNTHROID [Concomitant]
  3. DITROPAN [Concomitant]
  4. MULTI-VITAMIN [Concomitant]
  5. CALCIUM [Concomitant]
  6. VITAMIN E [Concomitant]
  7. VITAMIN A [Concomitant]
  8. VITAMIN B-12 [Concomitant]
  9. VITAMIN B6 [Concomitant]

REACTIONS (7)
  - ASTHENIA [None]
  - CHEST PAIN [None]
  - DIZZINESS [None]
  - DRUG HYPERSENSITIVITY [None]
  - DYSPNOEA [None]
  - HEART RATE INCREASED [None]
  - PALPITATIONS [None]
